FAERS Safety Report 25953857 (Version 1)
Quarter: 2025Q4

REPORT INFORMATION
  Report Type: Spontaneous
  Country: US (occurrence: None)
  Receive Date: 20251023
  Receipt Date: 20251023
  Transmission Date: 20260118
  Serious: Yes (Hospitalization)
  Sender: FDA-CTU
  Company Number: None

PATIENT
  Sex: Male

DRUGS (1)
  1. SKYRIZI [Suspect]
     Active Substance: RISANKIZUMAB-RZAA
     Indication: Colitis ulcerative
     Dosage: 360 MG EVERY 6 WEEKS SUBCUTANUS?
     Route: 058
     Dates: start: 20250312

REACTIONS (3)
  - Vomiting [None]
  - Diarrhoea [None]
  - Clostridium difficile infection [None]
